FAERS Safety Report 9531434 (Version 1)
Quarter: 2013Q2

REPORT INFORMATION
  Report Type: Spontaneous
  Country: US (occurrence: None)
  Receive Date: 20130503
  Receipt Date: 20130503
  Transmission Date: 20140414
  Serious: Yes (Other)
  Sender: FDA-Public Use
  Company Number: 1000043657

PATIENT
  Age: 50 Year
  Sex: Female

DRUGS (5)
  1. DALIRESP [Suspect]
     Indication: CHRONIC OBSTRUCTIVE PULMONARY DISEASE
     Dosage: 500 MCG, 1 IN 1 D, ORAL
     Route: 048
     Dates: start: 2013
  2. DALIRESP [Suspect]
     Indication: BRONCHITIS CHRONIC
     Dosage: 500 MCG, 1 IN 1 D, ORAL
     Route: 048
     Dates: start: 2013
  3. LEVAQUIN [Suspect]
     Indication: BRONCHITIS CHRONIC
     Dates: start: 20130321
  4. PULMICORT (BUDESONIDE) (BUDESONIDE) [Concomitant]
  5. ALBUTEROL (ALBUTEROL) (ALBUTEROL) [Concomitant]

REACTIONS (2)
  - Nausea [None]
  - Pruritus [None]
